FAERS Safety Report 13394550 (Version 2)
Quarter: 2017Q2

REPORT INFORMATION
  Report Type: Spontaneous
  Country: US (occurrence: US)
  Receive Date: 20170403
  Receipt Date: 20170427
  Transmission Date: 20170830
  Serious: No
  Sender: FDA-Public Use
  Company Number: US-CELGENEUS-USA-2017038327

PATIENT
  Sex: Male
  Weight: 66.28 kg

DRUGS (1)
  1. REVLIMID [Suspect]
     Active Substance: LENALIDOMIDE
     Indication: PLASMA CELL MYELOMA
     Dosage: 25 MILLIGRAM
     Route: 048
     Dates: start: 20170201

REACTIONS (5)
  - Pruritus [Unknown]
  - Asthenia [Unknown]
  - Dizziness postural [Not Recovered/Not Resolved]
  - Sleep disorder [Unknown]
  - Bone pain [Unknown]
